FAERS Safety Report 5159234-3 (Version None)
Quarter: 2006Q4

REPORT INFORMATION
  Report Type: 
  Country: None (occurrence: None)
  Receive Date: 20061128
  Receipt Date: 20061117
  Transmission Date: 20070319
  Serious: Yes (Death, Hospitalization)
  Sender: FDA-Public Use
  Company Number: TW-MERCK-0611USA06091

PATIENT
  Age: 52 Year
  Sex: Female

DRUGS (13)
  1. PRIMAXIN [Suspect]
     Indication: BACTERIAL INFECTION
     Route: 042
  2. PRIMAXIN [Suspect]
     Indication: NOSOCOMIAL INFECTION
     Route: 042
  3. VANCOMYCIN [Suspect]
     Indication: NOSOCOMIAL INFECTION
     Route: 065
  4. VANCOMYCIN [Suspect]
     Indication: BACTERIAL INFECTION
     Route: 065
  5. PIPERACILLIN SODIUM AND TAZOBACTAM SODIUM [Suspect]
     Indication: PNEUMONIA
     Route: 065
  6. METHYLPREDNISOLONE [Suspect]
     Indication: WHEEZING
     Route: 065
  7. [THERAPY UNSPECIFIED] [Concomitant]
     Indication: WHEEZING
     Route: 065
  8. PRIMAXIN [Suspect]
     Indication: PSEUDOMONAS INFECTION
     Route: 042
  9. AMINO ACIDS (UNSPECIFIED) AND CARBOHYDRATES (UNSPECIFIED) AND ELECTROL [Concomitant]
     Route: 042
  10. GEFITINIB [Concomitant]
     Route: 065
  11. BETAMETHASONE [Suspect]
     Route: 065
  12. FLUCONAZOLE [Suspect]
     Indication: BACTERIAL INFECTION
     Route: 042
  13. FLUCONAZOLE [Suspect]
     Indication: NOSOCOMIAL INFECTION
     Route: 042

REACTIONS (5)
  - DRUG INEFFECTIVE [None]
  - EMPYEMA [None]
  - FUNGAEMIA [None]
  - PNEUMONIA [None]
  - SEPTIC SHOCK [None]
